FAERS Safety Report 12183753 (Version 1)
Quarter: 2016Q1

REPORT INFORMATION
  Report Type: Spontaneous
  Country: US (occurrence: None)
  Receive Date: 20160315
  Receipt Date: 20160315
  Transmission Date: 20160526
  Serious: No
  Sender: FDA-Public Use
  Company Number: None

PATIENT
  Age: 70 Year

DRUGS (8)
  1. PREDNISONE. [Concomitant]
     Active Substance: PREDNISONE
  2. PROGRAF [Concomitant]
     Active Substance: TACROLIMUS\TACROLIMUS ANHYDROUS
  3. PANTOPRAZOLE [Concomitant]
     Active Substance: PANTOPRAZOLE SODIUM
  4. PAROXETINE [Concomitant]
     Active Substance: PAROXETINE\PAROXETINE HYDROCHLORIDE
  5. MAG TAB SR [Concomitant]
  6. MYFORTIC [Concomitant]
     Active Substance: MYCOPHENOLATE SODIUM
  7. KCL [Concomitant]
     Active Substance: POTASSIUM CHLORIDE
  8. CYCLOBENZAPRINE 5MG QUALITEST [Suspect]
     Active Substance: CYCLOBENZAPRINE
     Indication: MUSCLE STRAIN
     Dosage: 1 Q8H PRN PRN/AS NEEDED ORAL
     Route: 048
     Dates: start: 20160314, end: 20160314

REACTIONS (1)
  - Heart rate increased [None]

NARRATIVE: CASE EVENT DATE: 20160314
